FAERS Safety Report 7116063-9 (Version None)
Quarter: 2010Q4

REPORT INFORMATION
  Report Type: 
  Country: None (occurrence: None)
  Receive Date: 20101122
  Receipt Date: 20101109
  Transmission Date: 20110411
  Serious: Yes (Other)
  Sender: FDA-Public Use
  Company Number: TR-ROCHE-740663

PATIENT
  Age: 47 Year
  Sex: Female

DRUGS (1)
  1. INTERFERON ALFA [Suspect]
     Indication: NEOPLASM
     Route: 065
     Dates: start: 20080101

REACTIONS (1)
  - NEOPLASM [None]
